FAERS Safety Report 14802535 (Version 1)
Quarter: 2018Q2

REPORT INFORMATION
  Report Type: Spontaneous
  Country: US (occurrence: US)
  Receive Date: 20180424
  Receipt Date: 20180424
  Transmission Date: 20180711
  Serious: No
  Sender: FDA-Public Use
  Company Number: US-BIOGEN-2018BI00558976

PATIENT
  Age: 37 Year
  Sex: Male

DRUGS (1)
  1. TECFIDERA [Suspect]
     Active Substance: DIMETHYL FUMARATE
     Indication: PRODUCT USED FOR UNKNOWN INDICATION
     Dosage: MAINTENANCE DOSE
     Route: 065

REACTIONS (7)
  - Headache [Unknown]
  - Diarrhoea [Unknown]
  - Multiple sclerosis [Unknown]
  - Muscular weakness [Unknown]
  - Cognitive disorder [Unknown]
  - Abdominal pain [Unknown]
  - Balance disorder [Unknown]

NARRATIVE: CASE EVENT DATE: 20180118
